FAERS Safety Report 17886442 (Version 2)
Quarter: 2020Q2

REPORT INFORMATION
  Report Type: Spontaneous
  Country: CA (occurrence: CA)
  Receive Date: 20200611
  Receipt Date: 20200626
  Transmission Date: 20200714
  Serious: Yes (Other)
  Sender: FDA-Public Use
  Company Number: CA-DUCHESNAY-2020CA000060

PATIENT
  Age: 43 Year
  Sex: Female

DRUGS (5)
  1. COENZYME Q10 [Concomitant]
     Active Substance: UBIDECARENONE
  2. VITAMIN D NOS [Concomitant]
     Active Substance: VITAMIN D NOS
  3. PROBIOTICS NOS [Concomitant]
     Active Substance: PROBIOTICS NOS
  4. PREGVIT (MINERALS\POTASSIUM IODIDE\VITAMINS) [Suspect]
     Active Substance: MINERALS\POTASSIUM IODIDE\VITAMINS
     Indication: VITAMIN SUPPLEMENTATION
     Dosage: UNK
     Dates: start: 20200505
  5. FISH OIL [Concomitant]
     Active Substance: FISH OIL

REACTIONS (1)
  - Abortion spontaneous [Not Recovered/Not Resolved]

NARRATIVE: CASE EVENT DATE: 20200509
